FAERS Safety Report 19173936 (Version 2)
Quarter: 2021Q2

REPORT INFORMATION
  Report Type: Spontaneous
  Country: JP (occurrence: JP)
  Receive Date: 20210423
  Receipt Date: 20210423
  Transmission Date: 20210717
  Serious: Yes (Other)
  Sender: FDA-Public Use
  Company Number: JP-SA-2021SA128427

PATIENT
  Age: 71 Year
  Sex: Female

DRUGS (1)
  1. KEVZARA [Suspect]
     Active Substance: SARILUMAB
     Indication: RHEUMATOID ARTHRITIS
     Route: 058

REACTIONS (5)
  - Nephropathy toxic [Unknown]
  - Proteinuria [Recovering/Resolving]
  - Transaminases increased [Unknown]
  - Haematuria [Unknown]
  - Renal impairment [Recovered/Resolved]
